FAERS Safety Report 9159713 (Version 2)
Quarter: 2014Q2

REPORT INFORMATION
  Report Type: Spontaneous
  Country: US (occurrence: US)
  Receive Date: 20130313
  Receipt Date: 20140527
  Transmission Date: 20141212
  Serious: No
  Sender: FDA-Public Use
  Company Number: US-PFIZER INC-2013079810

PATIENT
  Sex: Female

DRUGS (6)
  1. ADVIL [Suspect]
     Indication: PAIN
     Dosage: 200 MG, AS NEEDED
     Route: 048
  2. ADVIL [Suspect]
     Indication: FEELING OF RELAXATION
  3. ADVIL [Suspect]
     Indication: INSOMNIA
  4. ADVIL [Suspect]
     Indication: ARTHRALGIA
  5. ADVIL [Suspect]
     Indication: BACK PAIN
  6. LISINOPRIL [Concomitant]
     Indication: HYPERTENSION
     Dosage: 20 MG, ONCE A DAY

REACTIONS (2)
  - Off label use [Unknown]
  - Hyperhidrosis [Unknown]
